FAERS Safety Report 6145307-5 (Version None)
Quarter: 2009Q2

REPORT INFORMATION
  Report Type: 
  Country: None (occurrence: None)
  Receive Date: 20090406
  Receipt Date: 20090331
  Transmission Date: 20091009
  Serious: No
  Sender: FDA-Public Use
  Company Number: US-B.I. PHARMACEUTICALS,INC./RIDGEFIELD-2009-BP-03972BP

PATIENT
  Sex: Male

DRUGS (2)
  1. FLOMAX [Suspect]
     Indication: BENIGN PROSTATIC HYPERPLASIA
     Route: 048
     Dates: start: 20080101
  2. FLOMAX [Suspect]
     Route: 048
     Dates: start: 20080101

REACTIONS (3)
  - DIZZINESS [None]
  - NAUSEA [None]
  - VOMITING [None]
